FAERS Safety Report 10623487 (Version 1)
Quarter: 2014Q4

REPORT INFORMATION
  Report Type: Spontaneous
  Country: DE (occurrence: DE)
  Receive Date: 20141203
  Receipt Date: 20141203
  Transmission Date: 20150529
  Serious: Yes (Hospitalization)
  Sender: FDA-Public Use
  Company Number: DE-ASTRAZENECA-2014SE90848

PATIENT
  Age: 58 Year
  Sex: Female

DRUGS (4)
  1. FENTANYL. [Suspect]
     Active Substance: FENTANYL
     Route: 065
     Dates: start: 20140616
  2. MONO-EMBOLEX [Concomitant]
     Active Substance: CERTOPARIN SODIUM
     Dosage: 3000 IU
     Dates: start: 20140617
  3. PROPOFOL. [Suspect]
     Active Substance: PROPOFOL
     Route: 042
     Dates: start: 20140616
  4. L-THYROXIN [Concomitant]
     Active Substance: LEVOTHYROXINE SODIUM
     Indication: THYROIDECTOMY

REACTIONS (3)
  - Jaundice [Unknown]
  - Transaminases increased [Unknown]
  - Drug-induced liver injury [Unknown]

NARRATIVE: CASE EVENT DATE: 20140720
